FAERS Safety Report 9039213 (Version 1)
Quarter: 2013Q1

REPORT INFORMATION
  Report Type: Spontaneous
  Country: US (occurrence: US)
  Receive Date: 20130129
  Receipt Date: 20130129
  Transmission Date: 20140127
  Serious: No
  Sender: FDA-Public Use
  Company Number: US-ABBOTT-12P-163-0934401-00

PATIENT
  Sex: Female
  Weight: 47.22 kg

DRUGS (5)
  1. HUMIRA 40 MG/0.8 ML PEN [Suspect]
     Indication: CROHN^S DISEASE
     Route: 058
     Dates: start: 201107
  2. PREDNISONE [Concomitant]
     Indication: CROHN^S DISEASE
  3. CIPRO [Concomitant]
     Indication: PROPHYLAXIS
  4. CIPRO [Concomitant]
     Indication: CROHN^S DISEASE
  5. TRINESSA [Concomitant]
     Indication: CONTRACEPTION

REACTIONS (2)
  - Injection site bruising [Not Recovered/Not Resolved]
  - Injection site pain [Not Recovered/Not Resolved]
